FAERS Safety Report 4861492-7 (Version None)
Quarter: 2005Q4

REPORT INFORMATION
  Report Type: 
  Country: None (occurrence: None)
  Receive Date: 20051220
  Receipt Date: 20051206
  Transmission Date: 20060501
  Serious: Yes (Other)
  Sender: FDA-Public Use
  Company Number: GB-JNJFOC-20051202993

PATIENT
  Sex: Female

DRUGS (2)
  1. TOPAMAX [Suspect]
     Indication: EPILEPSY
     Route: 065
  2. TEGRETOL [Concomitant]
     Indication: EPILEPSY
     Route: 065

REACTIONS (2)
  - ABORTION INFECTED [None]
  - DRUG EXPOSURE DURING PREGNANCY [None]
